FAERS Safety Report 19482601 (Version 1)
Quarter: 2021Q3

REPORT INFORMATION
  Report Type: Spontaneous
  Country: FR (occurrence: FR)
  Receive Date: 20210701
  Receipt Date: 20210701
  Transmission Date: 20211014
  Serious: Yes (Death)
  Sender: FDA-Public Use
  Company Number: FR-TEVA-2021-FR-1926291

PATIENT
  Age: 35 Year
  Sex: Male

DRUGS (5)
  1. HEROIN [Suspect]
     Active Substance: DIAMORPHINE
     Dosage: UNKNOWN
     Route: 065
     Dates: end: 2020
  2. MDMA [Suspect]
     Active Substance: MIDOMAFETAMINE
     Dosage: UNKNOWN
     Route: 065
     Dates: end: 2020
  3. MDA [Suspect]
     Active Substance: TENAMFETAMINE
     Dosage: UNKNOWN
     Route: 065
     Dates: end: 2020
  4. COCAINE [Suspect]
     Active Substance: COCAINE
     Dosage: UNKNOWN
     Route: 065
     Dates: end: 2020
  5. METHYLPHENIDATE. [Suspect]
     Active Substance: METHYLPHENIDATE
     Dosage: UNKNOWN
     Route: 065
     Dates: end: 2020

REACTIONS (1)
  - Drug abuse [Fatal]
